FAERS Safety Report 4993540-8 (Version None)
Quarter: 2006Q2

REPORT INFORMATION
  Report Type: 
  Country: None (occurrence: None)
  Receive Date: 20060504
  Receipt Date: 20060504
  Transmission Date: 20061013
  Serious: No
  Sender: FDA-Public Use
  Company Number: None

PATIENT
  Age: 45 Year
  Sex: Male
  Weight: 117.9352 kg

DRUGS (1)
  1. SEROQUEL [Suspect]
     Dosage: 50 MG 2 /DAY

REACTIONS (4)
  - HYPOTENSION [None]
  - INFLUENZA LIKE ILLNESS [None]
  - SKIN ULCER [None]
  - TACHYCARDIA [None]
